FAERS Safety Report 12642408 (Version 1)
Quarter: 2016Q3

REPORT INFORMATION
  Report Type: Spontaneous
  Country: US (occurrence: US)
  Receive Date: 20160810
  Receipt Date: 20160810
  Transmission Date: 20161109
  Serious: Yes (Hospitalization, Disabling, Other)
  Sender: FDA-Public Use
  Company Number: US-009507513-1106USA02743

PATIENT
  Sex: Female

DRUGS (8)
  1. ALENDRONATE SODIUM. [Suspect]
     Active Substance: ALENDRONATE SODIUM
     Indication: OSTEOPOROSIS
     Dosage: 70 MG, QW
     Dates: start: 20080409, end: 201102
  2. CYANOCOBALAMIN. [Concomitant]
     Active Substance: CYANOCOBALAMIN
     Indication: CROHN^S DISEASE
     Dates: start: 1993
  3. FOSAMAX [Suspect]
     Active Substance: ALENDRONATE SODIUM
     Indication: OSTEOPENIA
     Dosage: 10 MG, QD
     Route: 048
     Dates: start: 19971006
  4. FOSAMAX [Suspect]
     Active Substance: ALENDRONATE SODIUM
     Dosage: UNK MG, UNK
     Route: 048
     Dates: start: 20010924
  5. FOSAMAX [Suspect]
     Active Substance: ALENDRONATE SODIUM
     Indication: OSTEOPOROSIS
     Dosage: 70 MG, QW
     Route: 048
     Dates: start: 199708, end: 20100331
  6. METICORTEN [Concomitant]
     Active Substance: PREDNISONE
     Indication: SKIN DISORDER
     Dates: start: 1986, end: 2007
  7. CORTICOSTEROIDS (UNSPECIFIED) [Concomitant]
     Active Substance: UNSPECIFIED INGREDIENT
     Indication: SKIN DISORDER
     Dates: start: 1986, end: 2007
  8. CLIMARA [Concomitant]
     Active Substance: ESTRADIOL
     Indication: HORMONE THERAPY
     Dates: start: 1995, end: 2010

REACTIONS (49)
  - Calcium deficiency [Unknown]
  - Fatigue [Unknown]
  - Complication associated with device [Unknown]
  - Femur fracture [Recovered/Resolved]
  - Hypercholesterolaemia [Unknown]
  - Kyphosis [Unknown]
  - Crohn^s disease [Unknown]
  - Breast adenoma [Unknown]
  - Depression [Not Recovered/Not Resolved]
  - Gastrooesophageal reflux disease [Unknown]
  - Functional gastrointestinal disorder [Unknown]
  - Appendix disorder [Unknown]
  - Ileal ulcer [Unknown]
  - Hypoaesthesia [Unknown]
  - Fungal infection [Unknown]
  - Limb injury [Unknown]
  - Skin papilloma [Unknown]
  - Crohn^s disease [Unknown]
  - Spinal compression fracture [Unknown]
  - Sacroiliitis [Unknown]
  - Bronchitis [Unknown]
  - Insomnia [Unknown]
  - Colitis [Unknown]
  - Deficiency anaemia [Unknown]
  - Vitamin D deficiency [Unknown]
  - Arthritis [Not Recovered/Not Resolved]
  - Hiatus hernia [Unknown]
  - Iron deficiency anaemia [Unknown]
  - Spondylitis [Unknown]
  - Dermatitis [Unknown]
  - Cardiac murmur [Unknown]
  - Gastritis [Unknown]
  - Fall [Unknown]
  - Body height decreased [Unknown]
  - Anxiety [Not Recovered/Not Resolved]
  - Bone density decreased [Unknown]
  - Tooth impacted [Unknown]
  - Crohn^s disease [Unknown]
  - Urinary tract infection [Unknown]
  - Rheumatoid arthritis [Unknown]
  - Duodenitis [Unknown]
  - Cellulitis [Unknown]
  - Intestinal obstruction [Unknown]
  - Abscess limb [Unknown]
  - Gastrointestinal haemorrhage [Unknown]
  - Spondyloarthropathy [Unknown]
  - Nephrolithiasis [Unknown]
  - Small intestinal obstruction [Recovered/Resolved]
  - Gallbladder disorder [Unknown]

NARRATIVE: CASE EVENT DATE: 19970902
